FAERS Safety Report 6339476-1 (Version None)
Quarter: 2009Q3

REPORT INFORMATION
  Report Type: 
  Country: None (occurrence: None)
  Receive Date: 20090827
  Receipt Date: 20090615
  Transmission Date: 20100115
  Serious: No
  Sender: FDA-Public Use
  Company Number: 001073

PATIENT
  Sex: Female

DRUGS (2)
  1. LACOSAMIDE [Suspect]
     Indication: CONVULSION
     Dosage: (100 MG BID ORAL), (100 MG TID ORAL)
     Route: 048
     Dates: start: 20090609
  2. TEGRETOL [Concomitant]

REACTIONS (9)
  - BLOOD PRESSURE INCREASED [None]
  - CONTUSION [None]
  - CONVULSION [None]
  - DIZZINESS [None]
  - FRACTURE [None]
  - HEADACHE [None]
  - MUSCULOSKELETAL DISCOMFORT [None]
  - STRESS FRACTURE [None]
  - SWELLING FACE [None]
